FAERS Safety Report 11246638 (Version 1)
Quarter: 2015Q3

REPORT INFORMATION
  Report Type: Spontaneous
  Country: US (occurrence: None)
  Receive Date: 20150706
  Receipt Date: 20150706
  Transmission Date: 20151125
  Serious: No
  Sender: FDA-Public Use
  Company Number: None

PATIENT
  Sex: Male

DRUGS (2)
  1. MIRTAZAPINE. [Suspect]
     Active Substance: MIRTAZAPINE
  2. LASIX [Suspect]
     Active Substance: FUROSEMIDE

REACTIONS (7)
  - Oedema peripheral [None]
  - Fall [None]
  - Drug dispensing error [None]
  - Drug dose omission [None]
  - Blister [None]
  - Sleep disorder [None]
  - Pain [None]

NARRATIVE: CASE EVENT DATE: 2015
